FAERS Safety Report 9775599 (Version 1)
Quarter: 2013Q4

REPORT INFORMATION
  Report Type: Report from Study
  Country: CA (occurrence: CA)
  Receive Date: 20131220
  Receipt Date: 20131220
  Transmission Date: 20140711
  Serious: Yes (Hospitalization, Other)
  Sender: FDA-Public Use
  Company Number: CA-JNJFOC-20131209886

PATIENT
  Age: 29 Year
  Sex: Female
  Weight: 58.4 kg

DRUGS (5)
  1. REMICADE [Suspect]
     Indication: CROHN^S DISEASE
     Route: 042
     Dates: start: 20090826
  2. SEROQUEL [Concomitant]
     Route: 065
  3. CIPRALEX [Concomitant]
     Route: 065
  4. VITAMIN D [Concomitant]
     Route: 065
  5. ESOMEPRAZOLE [Concomitant]
     Route: 065

REACTIONS (6)
  - Intestinal resection [Unknown]
  - Hernia [Unknown]
  - Gastrointestinal stoma complication [Unknown]
  - Ileostomy [Unknown]
  - Ear infection [Unknown]
  - Influenza [Unknown]
